FAERS Safety Report 21766318 (Version 2)
Quarter: 2022Q4

REPORT INFORMATION
  Report Type: Spontaneous
  Country: KR (occurrence: KR)
  Receive Date: 20221222
  Receipt Date: 20221227
  Transmission Date: 20230113
  Serious: Yes (Hospitalization, Other)
  Sender: FDA-Public Use
  Company Number: KR-MLMSERVICE-20221206-3965025-1

PATIENT
  Age: 65 Year
  Sex: Male

DRUGS (4)
  1. PAXLOVID [Interacting]
     Active Substance: NIRMATRELVIR\RITONAVIR
     Indication: COVID-19 treatment
     Dosage: UNK
  2. TACROLIMUS [Interacting]
     Active Substance: TACROLIMUS
     Indication: Immunosuppressant drug therapy
     Dosage: FREQ:12 H;4.5 MG TWICE A DAY
  3. PREDNISONE [Concomitant]
     Active Substance: PREDNISONE
     Indication: Immunosuppressant drug therapy
     Dosage: 5 MG, 1X/DAY
  4. MYCOPHENOLATE MOFETIL [Concomitant]
     Active Substance: MYCOPHENOLATE MOFETIL
     Indication: Immunosuppressant drug therapy
     Dosage: 360 MG, 2X/DAY (EVERY 12 HOURS)

REACTIONS (8)
  - Nephropathy toxic [Recovered/Resolved]
  - Immunosuppressant drug level increased [Recovered/Resolved]
  - Headache [Recovered/Resolved]
  - Nausea [Recovered/Resolved]
  - Toxicity to various agents [Recovered/Resolved]
  - Drug interaction [Recovered/Resolved]
  - Abdominal pain [Recovered/Resolved]
  - Neuropathy peripheral [Recovered/Resolved]
